FAERS Safety Report 9434343 (Version 1)
Quarter: 2013Q3

REPORT INFORMATION
  Report Type: Spontaneous
  Country: US (occurrence: None)
  Receive Date: 20130731
  Receipt Date: 20130731
  Transmission Date: 20140515
  Serious: Yes (Death)
  Sender: FDA-Public Use
  Company Number: None

PATIENT
  Age: 57 Year
  Sex: Female
  Weight: 118 kg

DRUGS (1)
  1. XARELTO [Suspect]
     Indication: THROMBOSIS PROPHYLAXIS
     Dosage: 10 MG DAILY PO
     Route: 048
     Dates: start: 20130620, end: 20130726

REACTIONS (11)
  - Pyrexia [None]
  - Procedural nausea [None]
  - Fall [None]
  - Cardio-respiratory arrest [None]
  - Supraventricular extrasystoles [None]
  - Blood pressure systolic increased [None]
  - Pulseless electrical activity [None]
  - Right ventricular failure [None]
  - Bacteraemia [None]
  - Foreign body [None]
  - Haemarthrosis [None]
